FAERS Safety Report 9245893 (Version 1)
Quarter: 2013Q2

REPORT INFORMATION
  Report Type: Spontaneous
  Country: US (occurrence: US)
  Receive Date: 20130422
  Receipt Date: 20130422
  Transmission Date: 20140414
  Serious: No
  Sender: FDA-Public Use
  Company Number: US-B.I. PHARMACEUTICALS,INC./RIDGEFIELD-2013-BI-09916BP

PATIENT
  Age: 73 Year
  Sex: Female
  Weight: 67 kg

DRUGS (10)
  1. SPIRIVA [Suspect]
     Indication: CHRONIC OBSTRUCTIVE PULMONARY DISEASE
     Dosage: 18 MCG
     Route: 055
     Dates: start: 2010
  2. EFFEXOR [Concomitant]
     Indication: HOT FLUSH
     Dosage: 75 MG
     Route: 048
  3. CRESTOR [Concomitant]
     Indication: BLOOD CHOLESTEROL INCREASED
     Dosage: 40 MG
     Route: 048
  4. METOPROLOL [Concomitant]
     Indication: HYPERTENSION
     Dosage: 50 MG
     Route: 048
  5. ASPIRIN [Concomitant]
     Dosage: 325 MG
     Route: 048
  6. ZETIA [Concomitant]
     Indication: BLOOD CHOLESTEROL INCREASED
     Dosage: 10 MG
     Route: 048
  7. OMEPRAZOLE [Concomitant]
     Indication: GASTROOESOPHAGEAL REFLUX DISEASE
     Dosage: 40 MG
     Route: 048
  8. AMLODIPINE [Concomitant]
     Indication: HYPERTENSION
     Dosage: 5 MG
     Route: 048
  9. OXYBUTYNIN [Concomitant]
     Indication: HYPERTONIC BLADDER
     Dosage: 10 MG
     Route: 048
  10. SINGULAIR [Concomitant]
     Indication: SEASONAL ALLERGY
     Dosage: 10 MG
     Route: 048

REACTIONS (2)
  - Bronchitis [Recovered/Resolved]
  - Back pain [Recovered/Resolved]
